FAERS Safety Report 9152799 (Version 1)
Quarter: 2013Q1

REPORT INFORMATION
  Report Type: Spontaneous
  Country: US (occurrence: US)
  Receive Date: 20130111
  Receipt Date: 20130111
  Transmission Date: 20140127
  Serious: Yes (Death, Hospitalization)
  Sender: FDA-Public Use
  Company Number: US-JNJFOC-20130104423

PATIENT
  Age: 53 Year
  Sex: Female

DRUGS (6)
  1. LOPERAMIDE [Suspect]
     Indication: SUICIDE ATTEMPT
     Route: 048
  2. DIPHENHYDRAMINE [Suspect]
     Indication: SUICIDE ATTEMPT
     Route: 048
  3. BUPROPION [Suspect]
     Indication: SUICIDE ATTEMPT
     Route: 048
  4. TRAZODONE [Suspect]
     Indication: SUICIDE ATTEMPT
     Route: 048
  5. AMPHETAMINE [Suspect]
     Indication: SUICIDE ATTEMPT
     Route: 048
  6. BISMUTH SUBSALICYLATE [Suspect]
     Indication: SUICIDE ATTEMPT
     Route: 048

REACTIONS (4)
  - Toxicity to various agents [Fatal]
  - Cardiac arrest [None]
  - Respiratory arrest [None]
  - Suicide attempt [None]
